FAERS Safety Report 15027841 (Version 5)
Quarter: 2020Q4

REPORT INFORMATION
  Report Type: Spontaneous
  Country: US (occurrence: US)
  Receive Date: 20180619
  Receipt Date: 20201204
  Transmission Date: 20210113
  Serious: Yes (Other)
  Sender: FDA-Public Use
  Company Number: US-PFIZER INC-2018246730

PATIENT
  Age: 76 Year
  Sex: Female

DRUGS (1)
  1. LYRICA [Suspect]
     Active Substance: PREGABALIN
     Indication: NERVE COMPRESSION
     Dosage: UNK

REACTIONS (5)
  - Product dose omission issue [Unknown]
  - Intentional dose omission [Unknown]
  - Choking [Unknown]
  - Somnolence [Unknown]
  - Dizziness [Recovered/Resolved]
